FAERS Safety Report 5854528-8 (Version None)
Quarter: 2008Q3

REPORT INFORMATION
  Report Type: 
  Country: None (occurrence: None)
  Receive Date: 20080822
  Receipt Date: 20070911
  Transmission Date: 20090109
  Serious: No
  Sender: FDA-Public Use
  Company Number: US-ABBOTT-07P-163-0416805-00

PATIENT
  Sex: Female
  Weight: 71.278 kg

DRUGS (2)
  1. SYNTHROID [Suspect]
     Indication: HYPOTHYROIDISM
     Route: 048
     Dates: start: 20070902
  2. RABEPRAZOLE SODIUM [Concomitant]
     Indication: GASTROOESOPHAGEAL REFLUX DISEASE
     Route: 048
     Dates: start: 20070902, end: 20070902

REACTIONS (4)
  - BODY TEMPERATURE FLUCTUATION [None]
  - HEADACHE [None]
  - MALAISE [None]
  - PAIN [None]
